FAERS Safety Report 8017550-1 (Version None)
Quarter: 2011Q4

REPORT INFORMATION
  Report Type: 
  Country: None (occurrence: None)
  Receive Date: 20111228
  Receipt Date: 20111208
  Transmission Date: 20120403
  Serious: Yes (Life-Threatening, Other)
  Sender: FDA-Public Use
  Company Number: 20110852

PATIENT
  Age: 59 Year
  Sex: Female

DRUGS (3)
  1. HYDROMORPHONE HCL [Suspect]
     Dosage: 1 MG INTRAMUSCULAR
     Route: 030
  2. PROMETHAZINE [Suspect]
     Dosage: 25 MG INTRAVENOUS
     Route: 042
  3. MEPERIDINE HYDROCHLORIDE [Suspect]
     Dosage: 50 MG UNKNOWN

REACTIONS (6)
  - ATELECTASIS [None]
  - SOMNOLENCE [None]
  - RESPIRATORY FAILURE [None]
  - BACK PAIN [None]
  - HYPOCAPNIA [None]
  - RESPIRATORY ACIDOSIS [None]
